FAERS Safety Report 17824140 (Version 1)
Quarter: 2020Q2

REPORT INFORMATION
  Report Type: Spontaneous
  Country: UM (occurrence: UM)
  Receive Date: 20200522
  Receipt Date: 20200522
  Transmission Date: 20200714
  Serious: No
  Sender: FDA-Public Use
  Company Number: None

PATIENT
  Weight: 80.29 kg

DRUGS (1)
  1. BALVERSA [Suspect]
     Active Substance: ERDAFITINIB
     Indication: METASTASES TO URINARY TRACT
     Dosage: ?          OTHER FREQUENCY:2TQD;?
     Route: 048
     Dates: start: 20200130

REACTIONS (3)
  - Therapy interrupted [None]
  - Stomatitis [None]
  - Vision blurred [None]
